FAERS Safety Report 4721431-6 (Version None)
Quarter: 2005Q3

REPORT INFORMATION
  Report Type: 
  Country: None (occurrence: None)
  Receive Date: 20050721
  Receipt Date: 20040831
  Transmission Date: 20060218
  Serious: Yes (Hospitalization)
  Sender: FDA-Public Use
  Company Number: US-BRISTOL-MYERS SQUIBB COMPANY-12688131

PATIENT
  Age: 78 Year
  Sex: Female
  Weight: 53 kg

DRUGS (6)
  1. COUMADIN [Suspect]
     Indication: HEART VALVE REPLACEMENT
     Dosage: DOSE ADJUSTED FROM 2.5MG DAILY TO 5MG DAILY
     Route: 048
     Dates: start: 19810101
  2. LANOXIN [Concomitant]
     Dosage: THERAPY DURATION - ^FOR YEARS^
  3. BENICAR [Concomitant]
  4. NORVASC [Concomitant]
  5. THERAGRAN-M [Concomitant]
     Dosage: THERAPY DURATION - ^FOR YEARS^
  6. XANAX [Concomitant]
     Dosage: AS NEEDED

REACTIONS (3)
  - HYPERTENSION [None]
  - INTERNATIONAL NORMALISED RATIO FLUCTUATION [None]
  - TRANSIENT ISCHAEMIC ATTACK [None]
